APPROVED DRUG PRODUCT: MEDROXYPROGESTERONE ACETATE
Active Ingredient: MEDROXYPROGESTERONE ACETATE
Strength: 150MG/ML
Dosage Form/Route: INJECTABLE;INJECTION
Application: A215397 | Product #001 | TE Code: AB
Applicant: AMNEAL EU LTD
Approved: Jun 7, 2023 | RLD: No | RS: No | Type: RX